FAERS Safety Report 9690940 (Version 4)
Quarter: 2014Q2

REPORT INFORMATION
  Report Type: Spontaneous
  Country: FR (occurrence: FR)
  Receive Date: 20131115
  Receipt Date: 20140502
  Transmission Date: 20141212
  Serious: Yes (Life-Threatening, Hospitalization, Other)
  Sender: FDA-Public Use
  Company Number: FR-PFIZER INC-2013326141

PATIENT
  Age: 14 Year
  Sex: Male
  Weight: 39 kg

DRUGS (1)
  1. ADVIL [Suspect]
     Indication: SINUSITIS
     Dosage: UNK
     Route: 048
     Dates: start: 20111004, end: 20111019

REACTIONS (8)
  - Headache [Recovered/Resolved]
  - Swelling [Recovered/Resolved]
  - Brain empyema [Recovered/Resolved]
  - Subcutaneous abscess [Recovered/Resolved]
  - Brain empyema [Unknown]
  - Superinfection [Recovered/Resolved]
  - Sinusitis [Recovered/Resolved]
  - Off label use [Recovered/Resolved]
